FAERS Safety Report 5938632-1 (Version None)
Quarter: 2008Q4

REPORT INFORMATION
  Report Type: 
  Country: None (occurrence: None)
  Receive Date: 20081103
  Receipt Date: 20081010
  Transmission Date: 20090506
  Serious: Yes (Hospitalization)
  Sender: FDA-Public Use
  Company Number: JP-ROCHE-578305

PATIENT
  Sex: Male

DRUGS (20)
  1. MYCOPHENOLATE MOFETIL [Suspect]
     Indication: PROPHYLAXIS AGAINST TRANSPLANT REJECTION
     Route: 048
     Dates: start: 20080517
  2. SULFAMETHOXAZOLE AND TRIMETHOPRIM [Suspect]
     Indication: PROPHYLAXIS
     Dosage: ON MONDAY, WEDNESDAY AND FRIDAY
     Route: 048
     Dates: start: 20080522
  3. PREDNISOLONE [Suspect]
     Indication: PROPHYLAXIS AGAINST TRANSPLANT REJECTION
     Route: 048
     Dates: start: 20080604
  4. PREDNISOLONE [Suspect]
     Route: 048
     Dates: start: 20080926
  5. DIOVAN [Suspect]
     Indication: HYPERTENSION
     Route: 048
     Dates: start: 20080611
  6. NEORAL [Suspect]
     Indication: PROPHYLAXIS AGAINST TRANSPLANT REJECTION
     Route: 048
     Dates: start: 20080701
  7. NEORAL [Suspect]
     Route: 048
     Dates: start: 20080926
  8. LANSOPRAZOLE [Concomitant]
     Route: 048
     Dates: start: 20080517
  9. NORVASC [Concomitant]
     Route: 048
     Dates: start: 20080604
  10. NORVASC [Concomitant]
     Route: 048
     Dates: start: 20080731
  11. LIPITOR [Concomitant]
     Route: 048
     Dates: start: 20080618
  12. LIPITOR [Concomitant]
     Route: 048
     Dates: start: 20080912
  13. FOSMICIN S [Concomitant]
     Route: 041
     Dates: start: 20080724, end: 20080724
  14. FOSMICIN S [Concomitant]
     Route: 041
     Dates: start: 20081002, end: 20081002
  15. ATROPINE [Concomitant]
     Route: 030
     Dates: start: 20080724, end: 20080724
  16. ATROPINE [Concomitant]
     Route: 030
     Dates: start: 20081002, end: 20081002
  17. XYLOCAINE [Concomitant]
     Dosage: ROUTE: TOPICAL INJECTION
     Route: 061
     Dates: start: 20080724, end: 20080724
  18. SIMULECT [Concomitant]
     Dosage: ROUTE: INTRAVENOUS (NOT OTHERWISE SPECIFIED)
     Route: 042
     Dates: start: 20080520, end: 20080520
  19. DETANTOL [Concomitant]
     Route: 048
     Dates: start: 20080911
  20. ATARAX [Concomitant]
     Route: 030
     Dates: start: 20081002, end: 20081002

REACTIONS (2)
  - BLOOD CREATININE INCREASED [None]
  - PROTEINURIA [None]
